FAERS Safety Report 17901217 (Version 1)
Quarter: 2020Q2

REPORT INFORMATION
  Report Type: Spontaneous
  Country: DK (occurrence: DK)
  Receive Date: 20200616
  Receipt Date: 20200616
  Transmission Date: 20200714
  Serious: Yes (Hospitalization)
  Sender: FDA-Public Use
  Company Number: DK-BAYER-2020-107676

PATIENT
  Age: 34 Year
  Sex: Female

DRUGS (1)
  1. QLAIRA [Suspect]
     Active Substance: DIENOGEST\ESTRADIOL VALERATE
     Indication: ORAL CONTRACEPTION
     Dosage: UNK
     Route: 048
     Dates: start: 201707

REACTIONS (8)
  - Hypercoagulation [Unknown]
  - Pyrexia [Recovered/Resolved]
  - Productive cough [Unknown]
  - Hemiplegia [Recovering/Resolving]
  - Cerebral thrombosis [Recovering/Resolving]
  - Fatigue [Unknown]
  - Carotid artery thrombosis [Recovering/Resolving]
  - Lung infiltration [Unknown]

NARRATIVE: CASE EVENT DATE: 201803
